FAERS Safety Report 24336564 (Version 4)
Quarter: 2025Q2

REPORT INFORMATION
  Report Type: Spontaneous
  Country: US (occurrence: US)
  Receive Date: 20240919
  Receipt Date: 20250507
  Transmission Date: 20250717
  Serious: Yes (Hospitalization, Other)
  Sender: JOHNSON AND JOHNSON
  Company Number: US-JNJFOC-20240939822

PATIENT
  Age: 47 Year
  Sex: Female

DRUGS (3)
  1. VELETRI [Suspect]
     Active Substance: EPOPROSTENOL
     Indication: Pulmonary arterial hypertension
     Dosage: EXPIRY DATE:31-JAN-2026
     Route: 042
     Dates: start: 202310
  2. AMBRISENTAN [Suspect]
     Active Substance: AMBRISENTAN
     Indication: Pulmonary arterial hypertension
     Dosage: THERAPY START DATE: OCT-2022?ADDITIONAL BATCH NUMBER: CTDMB
     Route: 065
     Dates: start: 202308
  3. SODIUM CHLORIDE [Concomitant]
     Active Substance: SODIUM CHLORIDE
     Indication: Product used for unknown indication

REACTIONS (6)
  - Near death experience [Unknown]
  - Respiratory disorder [Not Recovered/Not Resolved]
  - Central venous catheterisation [Unknown]
  - Chest pain [Not Recovered/Not Resolved]
  - Device malfunction [Unknown]
  - Product administration interrupted [Unknown]
